FAERS Safety Report 24583226 (Version 1)
Quarter: 2024Q4

REPORT INFORMATION
  Report Type: Spontaneous
  Country: GB (occurrence: GB)
  Receive Date: 20241106
  Receipt Date: 20241106
  Transmission Date: 20250114
  Serious: Yes (Hospitalization)
  Sender: GLAND PHARMA LTD
  Company Number: GB-GLANDPHARMA-GB-2024GLNLIT00953

PATIENT

DRUGS (1)
  1. ZOLEDRONIC ACID [Suspect]
     Active Substance: ZOLEDRONIC ACID
     Indication: Duchenne muscular dystrophy
     Route: 042

REACTIONS (3)
  - Acute phase reaction [Unknown]
  - Product use issue [Unknown]
  - Product use in unapproved indication [Unknown]
